FAERS Safety Report 15186821 (Version 2)
Quarter: 2019Q1

REPORT INFORMATION
  Report Type: Report from Study
  Country: US (occurrence: US)
  Receive Date: 20180723
  Receipt Date: 20190130
  Transmission Date: 20190417
  Serious: No
  Sender: FDA-Public Use
  Company Number: US-EXELIXIS-CABO-17011570

PATIENT
  Sex: Male

DRUGS (13)
  1. LEVOTHYROXINE. [Concomitant]
     Active Substance: LEVOTHYROXINE
  2. NATEGLINIDE. [Concomitant]
     Active Substance: NATEGLINIDE
  3. PROBIOTIC [Concomitant]
     Active Substance: PROBIOTICS NOS
  4. QUESTRAN [Concomitant]
     Active Substance: CHOLESTYRAMINE
  5. PROPRANOLOL [Concomitant]
     Active Substance: PROPRANOLOL HYDROCHLORIDE
  6. GERITOL [Concomitant]
     Active Substance: MINERALS\VITAMINS
  7. CABOMETYX [Suspect]
     Active Substance: CABOZANTINIB S-MALATE
     Indication: RENAL CANCER
     Dosage: 40 MG, QD
     Route: 048
     Dates: start: 20170112
  8. ASPIRIN. [Concomitant]
     Active Substance: ASPIRIN
  9. VITAMIN D3 [Concomitant]
     Active Substance: CHOLECALCIFEROL
  10. LEVETIRACETAM. [Concomitant]
     Active Substance: LEVETIRACETAM
  11. KLONOPIN [Concomitant]
     Active Substance: CLONAZEPAM
  12. CALCITROL [Concomitant]
     Active Substance: CALCITRIOL
  13. ONDANSETRON [Concomitant]
     Active Substance: ONDANSETRON

REACTIONS (5)
  - Insomnia [Unknown]
  - Malignant neoplasm progression [Unknown]
  - Road traffic accident [Unknown]
  - Drug ineffective [Unknown]
  - Eating disorder [Unknown]
